FAERS Safety Report 8083438-3 (Version None)
Quarter: 2012Q1

REPORT INFORMATION
  Report Type: 
  Country: None (occurrence: None)
  Receive Date: 20120127
  Receipt Date: 20110125
  Transmission Date: 20120608
  Serious: Yes (Hospitalization)
  Sender: FDA-Public Use
  Company Number: US-ABBOTT-11P-163-0700732-00

PATIENT
  Sex: Female
  Weight: 53.572 kg

DRUGS (10)
  1. PNEUMONIA VACCINE [Concomitant]
     Indication: PRODUCT USED FOR UNKNOWN INDICATION
  2. WELCHOL [Concomitant]
     Indication: FREQUENT BOWEL MOVEMENTS
  3. DILAUDID [Concomitant]
     Indication: PAIN
  4. FLAGYL [Concomitant]
     Indication: FREQUENT BOWEL MOVEMENTS
  5. FLU VACCINE [Concomitant]
     Indication: PRODUCT USED FOR UNKNOWN INDICATION
  6. HUMIRA [Suspect]
     Indication: CROHN'S DISEASE
  7. CLONAZEPAM [Concomitant]
     Indication: ANXIETY
  8. ONDANSETRON HCL [Concomitant]
     Indication: NAUSEA
  9. TRAZODONE HCL [Concomitant]
     Indication: INSOMNIA
  10. CHANTIX [Concomitant]
     Indication: EX-TOBACCO USER

REACTIONS (3)
  - CROHN'S DISEASE [None]
  - HYPERSOMNIA [None]
  - PAIN [None]
